FAERS Safety Report 7020300-9 (Version None)
Quarter: 2010Q3

REPORT INFORMATION
  Report Type: 
  Country: None (occurrence: None)
  Receive Date: 20100929
  Receipt Date: 20100916
  Transmission Date: 20110219
  Serious: Yes (Death, Other)
  Sender: FDA-Public Use
  Company Number: US-ELI_LILLY_AND_COMPANY-US201009004350

PATIENT
  Sex: Female

DRUGS (15)
  1. SYMBYAX [Suspect]
     Dosage: 12-25 MG UNK MG, UNKNOWN
     Route: 065
  2. CYMBALTA [Suspect]
     Dosage: 60 MG, DAILY (1/D)
     Route: 065
  3. ADVAIR DISKUS 100/50 [Concomitant]
     Dosage: UNK 250/50, 2/D
  4. SIMVASTATIN [Concomitant]
     Dosage: 40 D/F, DAILY (1/D)
  5. METFORMIN [Concomitant]
     Dosage: 1000 MG, 2/D
  6. LORTAB [Concomitant]
     Dosage: UNK 7.5/500, 3/D
  7. LYRICA [Concomitant]
     Dosage: 150 MG, 2/D
  8. LORATADINE [Concomitant]
     Dosage: 10 MG, UNK
  9. LISINOPRIL [Concomitant]
     Dosage: UNK 20/12.5, DAILY (1/D)
  10. ATENOLOL [Concomitant]
     Dosage: 25 D/F, DAILY (1/D)
  11. OMEPRAZOLE [Concomitant]
     Dosage: 20 D/F, DAILY (1/D)
  12. DITROPAN [Concomitant]
     Dosage: 5 MG, 3/D
  13. LANTUS [Concomitant]
     Dosage: 10 IU, DAILY (1/D) AT BEDTIME
  14. XALATAN [Concomitant]
     Indication: GLAUCOMA
     Dosage: 0.005 %, UNK
  15. MELOXICAM [Concomitant]
     Dosage: 15 MG, DAILY (1/D)

REACTIONS (3)
  - CARDIAC ARREST [None]
  - MYOCARDIAL INFARCTION [None]
  - WEIGHT INCREASED [None]
